FAERS Safety Report 11038624 (Version 7)
Quarter: 2015Q4

REPORT INFORMATION
  Report Type: Report from Study
  Country: US (occurrence: US)
  Receive Date: 20150416
  Receipt Date: 20151229
  Transmission Date: 20160304
  Serious: Yes (Other)
  Sender: FDA-Public Use
  Company Number: US-SA-2014SA090619

PATIENT
  Age: 56 Year
  Sex: Female

DRUGS (3)
  1. AUBAGIO [Suspect]
     Active Substance: TERIFLUNOMIDE
     Indication: MULTIPLE SCLEROSIS
     Route: 048
     Dates: start: 2015
  2. AUBAGIO [Suspect]
     Active Substance: TERIFLUNOMIDE
     Indication: MULTIPLE SCLEROSIS
     Route: 048
     Dates: end: 20150808
  3. AUBAGIO [Suspect]
     Active Substance: TERIFLUNOMIDE
     Indication: MULTIPLE SCLEROSIS
     Route: 048
     Dates: start: 20140701

REACTIONS (27)
  - Diarrhoea [Not Recovered/Not Resolved]
  - Hepatic enzyme increased [Not Recovered/Not Resolved]
  - Arthralgia [Not Recovered/Not Resolved]
  - Stress [Unknown]
  - Joint swelling [Unknown]
  - Occipital neuralgia [Unknown]
  - Alopecia [Not Recovered/Not Resolved]
  - Thinking abnormal [Unknown]
  - Sensory loss [Unknown]
  - Fatigue [Not Recovered/Not Resolved]
  - Drug dose omission [Unknown]
  - Knee operation [Unknown]
  - Nausea [Unknown]
  - Disturbance in attention [Not Recovered/Not Resolved]
  - Dyspnoea [Unknown]
  - Dysgraphia [Not Recovered/Not Resolved]
  - Gait disturbance [Unknown]
  - Pruritus [Not Recovered/Not Resolved]
  - Amnesia [Unknown]
  - Mobility decreased [Unknown]
  - Disorientation [Unknown]
  - Feeling abnormal [Unknown]
  - Limb discomfort [Unknown]
  - Influenza [Unknown]
  - Hemiparesis [Unknown]
  - Impaired driving ability [Unknown]
  - Paraesthesia [Not Recovered/Not Resolved]

NARRATIVE: CASE EVENT DATE: 201407
